FAERS Safety Report 5353316-9 (Version None)
Quarter: 2007Q2

REPORT INFORMATION
  Report Type: 
  Country: None (occurrence: None)
  Receive Date: 20070518
  Receipt Date: 20070228
  Transmission Date: 20071010
  Serious: No
  Sender: FDA-Public Use
  Company Number: TPA2007A00400

PATIENT
  Age: 44 Year
  Sex: Female
  Weight: 55.7924 kg

DRUGS (6)
  1. ROZEREM [Suspect]
     Indication: INITIAL INSOMNIA
     Dosage: 8 MG, QHS, PER ORAL
     Route: 048
     Dates: start: 20070214
  2. CANASA (MESALAZINE) [Concomitant]
  3. NATREN PROBIOTICS (ALL OTHER THERAPEUTIC PRODUCTS) [Concomitant]
  4. FOLIC ACID [Concomitant]
  5. IRON (IRON) [Concomitant]
  6. RHINOCORT [Concomitant]

REACTIONS (3)
  - DRUG INEFFECTIVE [None]
  - INITIAL INSOMNIA [None]
  - PHOTOPHOBIA [None]
